FAERS Safety Report 23153764 (Version 3)
Quarter: 2023Q4

REPORT INFORMATION
  Report Type: Spontaneous
  Country: US (occurrence: US)
  Receive Date: 20231107
  Receipt Date: 20231210
  Transmission Date: 20240110
  Serious: Yes (Other)
  Sender: FDA-Public Use
  Company Number: US-BRISTOL-MYERS SQUIBB COMPANY-2023-158422

PATIENT
  Age: 80 Year
  Sex: Male

DRUGS (2)
  1. LENALIDOMIDE [Suspect]
     Active Substance: LENALIDOMIDE
     Indication: Plasma cell myeloma
     Dosage: TAKE 1 CAPSULE BY MOUTH DAILY ON DAYS 1-21 EVERY 28 DAYS (TAKE FOR 3 WEEKS IN A ROW WITH 1 WEEK OFF
     Route: 048
     Dates: start: 20230914
  2. LENALIDOMIDE [Suspect]
     Active Substance: LENALIDOMIDE
     Indication: Plasma cell myeloma in remission
     Dosage: DOSE WAS CHANGED TO TAKING 14 DAYS ON WITH 14 DAYS OFF
     Route: 048

REACTIONS (4)
  - Full blood count abnormal [Recovering/Resolving]
  - Off label use [Unknown]
  - Platelet count decreased [Not Recovered/Not Resolved]
  - Illness [Not Recovered/Not Resolved]
